FAERS Safety Report 8214638-7 (Version None)
Quarter: 2012Q1

REPORT INFORMATION
  Report Type: 
  Country: None (occurrence: None)
  Receive Date: 20120316
  Receipt Date: 20120307
  Transmission Date: 20120608
  Serious: Yes (Hospitalization, Other)
  Sender: FDA-Public Use
  Company Number: DE-B.I. PHARMACEUTICALS,INC./RIDGEFIELD-2012-DE-00698DE

PATIENT
  Age: 73 Year
  Sex: Female

DRUGS (3)
  1. SINGULAIR [Concomitant]
  2. PRADAXA [Suspect]
     Indication: ATRIAL FIBRILLATION
  3. TAMBOCOR [Concomitant]

REACTIONS (2)
  - SURGERY [None]
  - COAGULATION TEST [None]
